FAERS Safety Report 21661668 (Version 1)
Quarter: 2022Q4

REPORT INFORMATION
  Report Type: Report from Study
  Country: US (occurrence: US)
  Receive Date: 20221130
  Receipt Date: 20221130
  Transmission Date: 20230113
  Serious: No
  Sender: FDA-Public Use
  Company Number: US-ABBVIE-4182515

PATIENT
  Sex: Male

DRUGS (1)
  1. RINVOQ [Suspect]
     Active Substance: UPADACITINIB
     Indication: Rheumatoid arthritis
     Dosage: DRUG LAST ADMINISTRATION DATE WAS 2022,  FORM STRENGTH 15 MG
     Route: 048
     Dates: start: 20220804

REACTIONS (1)
  - Mouth haemorrhage [Not Recovered/Not Resolved]
